FAERS Safety Report 16652770 (Version 1)
Quarter: 2019Q3

REPORT INFORMATION
  Report Type: Spontaneous
  Country: US (occurrence: US)
  Receive Date: 20190731
  Receipt Date: 20190731
  Transmission Date: 20191004
  Serious: No
  Sender: FDA-Public Use
  Company Number: US-009507513-1907USA013354

PATIENT
  Age: 70 Year

DRUGS (1)
  1. BELSOMRA [Suspect]
     Active Substance: SUVOREXANT
     Dosage: UNK
     Route: 048
     Dates: start: 201907

REACTIONS (4)
  - Vomiting [Unknown]
  - Headache [Unknown]
  - Heart rate increased [Unknown]
  - Sleep paralysis [Unknown]

NARRATIVE: CASE EVENT DATE: 201907
